FAERS Safety Report 18533035 (Version 1)
Quarter: 2020Q4

REPORT INFORMATION
  Report Type: Other
  Country: CA (occurrence: CA)
  Receive Date: 20201123
  Receipt Date: 20201123
  Transmission Date: 20210114
  Serious: Yes (Other)
  Sender: FDA-Public Use
  Company Number: CA-CELLTRION INC.-2020CA031795

PATIENT

DRUGS (3)
  1. RITUXIMAB (UNKNOWN) [Suspect]
     Active Substance: RITUXIMAB
     Indication: GLOMERULONEPHRITIS MEMBRANOPROLIFERATIVE
  2. RITUXIMAB (UNKNOWN) [Suspect]
     Active Substance: RITUXIMAB
     Indication: CRYOGLOBULINAEMIA
  3. RITUXIMAB (UNKNOWN) [Suspect]
     Active Substance: RITUXIMAB
     Indication: MONOCLONAL GAMMOPATHY
     Route: 065

REACTIONS (10)
  - Chest pain [Unknown]
  - Myalgia [Unknown]
  - Intentional product use issue [Unknown]
  - Fatigue [Unknown]
  - Off label use [Unknown]
  - Arthralgia [Unknown]
  - Dyspnoea [Unknown]
  - Hypertension [Unknown]
  - Nephritis [Unknown]
  - Bronchiectasis [Unknown]
